FAERS Safety Report 4596106-7 (Version None)
Quarter: 2005Q1

REPORT INFORMATION
  Report Type: 
  Country: None (occurrence: None)
  Receive Date: 20050225
  Receipt Date: 20050217
  Transmission Date: 20050727
  Serious: Yes (Hospitalization)
  Sender: FDA-Public Use
  Company Number: 200510197BCC

PATIENT
  Age: 68 Year
  Sex: Female
  Weight: 74.3899 kg

DRUGS (3)
  1. ALEVE COLD AND SINUS [Suspect]
     Indication: NASOPHARYNGITIS
     Dosage: 220/120 MG QD ORAL
     Route: 048
     Dates: start: 20041206, end: 20041207
  2. LOVASTATIN [Concomitant]
  3. LISINOPRIL W/HYDROCHLOROTHAIZIDE [Concomitant]

REACTIONS (4)
  - ASTHENIA [None]
  - CHEST PAIN [None]
  - COLD SWEAT [None]
  - NECK PAIN [None]
